FAERS Safety Report 4351221-8 (Version None)
Quarter: 2004Q2

REPORT INFORMATION
  Report Type: 
  Country: None (occurrence: None)
  Receive Date: 20040428
  Receipt Date: 20040412
  Transmission Date: 20050107
  Serious: Yes (Other)
  Sender: FDA-Public Use
  Company Number: US_990623377

PATIENT
  Age: 77 Year
  Sex: Female
  Weight: 57 kg

DRUGS (9)
  1. EVISTA [Suspect]
     Indication: OSTEOPOROSIS
     Dosage: 60 MG/1 DAY
     Dates: start: 19990316
  2. FORTEO [Suspect]
     Indication: OSTEOPOROSIS
     Dosage: 20 UG/DAY
     Dates: start: 20030320, end: 20030320
  3. VOLTAREN [Concomitant]
  4. MULTIVITAMIN [Concomitant]
  5. ACTONEL [Concomitant]
  6. CALCIUM [Concomitant]
  7. VITAMIN C [Concomitant]
  8. VITAMIN D [Concomitant]
  9. NEURONTIN [Concomitant]

REACTIONS (8)
  - FALL [None]
  - FEELING ABNORMAL [None]
  - HEADACHE [None]
  - HIP ARTHROPLASTY [None]
  - HOT FLUSH [None]
  - JOINT STIFFNESS [None]
  - NEUROPATHY [None]
  - POST PROCEDURAL COMPLICATION [None]
